FAERS Safety Report 8611162-4 (Version None)
Quarter: 2012Q3

REPORT INFORMATION
  Report Type: 
  Country: None (occurrence: None)
  Receive Date: 20120423
  Receipt Date: 20081126
  Transmission Date: 20120928
  Serious: Yes (Other)
  Sender: FDA-Public Use
  Company Number: PHEH2008US11624

PATIENT
  Age: 81 Year
  Sex: Female

DRUGS (1)
  1. EXJADE [Suspect]
     Indication: MYELOFIBROSIS
     Dosage: 1000 MG, QD, ORAL
     Route: 048
     Dates: start: 20080904

REACTIONS (2)
  - BLOOD CREATININE INCREASED [None]
  - FEELING ABNORMAL [None]
